FAERS Safety Report 15763024 (Version 2)
Quarter: 2019Q1

REPORT INFORMATION
  Report Type: Spontaneous
  Country: US (occurrence: US)
  Receive Date: 20181226
  Receipt Date: 20190114
  Transmission Date: 20190417
  Serious: No
  Sender: FDA-Public Use
  Company Number: US-009507513-1812USA008962

PATIENT
  Age: 21 Year
  Sex: Female
  Weight: 92.97 kg

DRUGS (1)
  1. NEXPLANON [Suspect]
     Active Substance: ETONOGESTREL
     Indication: CONTRACEPTION
     Dosage: 1 IMPLANT 3 YEARS IN LEFT ARM
     Route: 059
     Dates: start: 20151215

REACTIONS (3)
  - Implant site pain [Not Recovered/Not Resolved]
  - Incorrect product administration duration [Unknown]
  - Product administration error [Unknown]

NARRATIVE: CASE EVENT DATE: 20181216
